FAERS Safety Report 9436743 (Version 1)
Quarter: 2013Q3

REPORT INFORMATION
  Report Type: Report from Study
  Country: CA (occurrence: CA)
  Receive Date: 20130802
  Receipt Date: 20130802
  Transmission Date: 20140515
  Serious: Yes (Hospitalization)
  Sender: FDA-Public Use
  Company Number: CA-JNJFOC-20130502204

PATIENT
  Age: 19 Year
  Sex: Female
  Weight: 64.41 kg

DRUGS (1)
  1. SIMPONI [Suspect]
     Indication: COLITIS ULCERATIVE
     Dosage: TREATMENT DURATION: 5 MINUTES
     Route: 058
     Dates: start: 2013

REACTIONS (3)
  - Clostridium difficile infection [Recovering/Resolving]
  - Colitis ulcerative [Recovering/Resolving]
  - Heart rate increased [Unknown]
